FAERS Safety Report 25005995 (Version 3)
Quarter: 2025Q1

REPORT INFORMATION
  Report Type: Spontaneous
  Country: US (occurrence: US)
  Receive Date: 20250224
  Receipt Date: 20250304
  Transmission Date: 20250409
  Serious: No
  Sender: PFIZER
  Company Number: US-PFIZER INC-PV202300206587

PATIENT
  Age: 75 Year
  Sex: Male
  Weight: 85.3 kg

DRUGS (4)
  1. INLYTA [Suspect]
     Active Substance: AXITINIB
     Indication: Metastatic renal cell carcinoma
     Dosage: 5 MG, 1X/DAY (TAKE AXITINIB 5 MG ONCE A DAY PO)
     Route: 048
  2. INLYTA [Suspect]
     Active Substance: AXITINIB
     Dosage: 5 MG, 2X/DAY (TAKE 1 TABLET BY MOUTH TWICE DAILY)
     Route: 048
     Dates: start: 20240405
  3. INLYTA [Suspect]
     Active Substance: AXITINIB
     Dosage: 5 MG, DAILY
     Route: 048
  4. PROCARDIA XL [NIFEDIPINE] [Concomitant]
     Dosage: 60 MG, 2X/DAY
     Route: 048

REACTIONS (1)
  - Off label use [Unknown]
